FAERS Safety Report 7686472-8 (Version None)
Quarter: 2011Q3

REPORT INFORMATION
  Report Type: 
  Country: None (occurrence: None)
  Receive Date: 20110816
  Receipt Date: 20110809
  Transmission Date: 20111222
  Serious: Yes (Hospitalization, Other)
  Sender: FDA-Public Use
  Company Number: AU-TEVA-296253ISR

PATIENT
  Sex: Female

DRUGS (7)
  1. DEXAMETHASONE [Concomitant]
     Dates: start: 20101029
  2. ONDANSETRONE [Concomitant]
  3. DACARBAZINE [Suspect]
     Indication: METASTATIC MALIGNANT MELANOMA
     Route: 042
     Dates: start: 20101028
  4. ENOXAPARIN SODIUM [Concomitant]
     Dates: start: 20101029
  5. OXYCONTIN [Concomitant]
     Dates: start: 20101005
  6. LACTULOSE [Concomitant]
     Dates: start: 20101029
  7. OXYCODAN [Concomitant]
     Dates: start: 20101005

REACTIONS (4)
  - NEUTROPENIA [None]
  - PNEUMONIA [None]
  - THROMBOCYTOPENIA [None]
  - PULMONARY OEDEMA [None]
